FAERS Safety Report 9636090 (Version 1)
Quarter: 2013Q4

REPORT INFORMATION
  Report Type: Spontaneous
  Country: CA (occurrence: CA)
  Receive Date: 20131021
  Receipt Date: 20131021
  Transmission Date: 20140711
  Serious: Yes (Hospitalization)
  Sender: FDA-Public Use
  Company Number: CA-MYLANLABS-2013S1022956

PATIENT
  Age: 52 Year
  Sex: Female
  Weight: 45 kg

DRUGS (9)
  1. VANCOMYCIN [Suspect]
     Route: 061
  2. MIDAZOLAM [Concomitant]
     Indication: INDUCTION OF ANAESTHESIA
     Route: 042
  3. FENTANYL [Concomitant]
     Indication: INDUCTION OF ANAESTHESIA
     Route: 065
  4. PROPOFOL [Concomitant]
     Indication: INDUCTION OF ANAESTHESIA
     Route: 065
  5. ROCURONIUM BROMIDE [Concomitant]
     Indication: INDUCTION OF ANAESTHESIA
     Route: 065
  6. DESFLURANE [Concomitant]
     Indication: MAINTENANCE OF ANAESTHESIA
     Dosage: 0.9-1 MINIMAL ALVEOLAR CONCENTRATION
     Route: 065
  7. REMIFENTANIL [Concomitant]
     Indication: MAINTENANCE OF ANAESTHESIA
     Dosage: 0.03-0.06 MICROG/KG/MIN
     Route: 050
  8. DEXAMETHASONE [Concomitant]
     Route: 042
  9. VOLUVEN /06404801/ [Concomitant]
     Indication: FLUID REPLACEMENT
     Dosage: 1.3L
     Route: 065

REACTIONS (2)
  - Anaphylactoid reaction [Recovered/Resolved]
  - Circulatory collapse [Recovered/Resolved]
